FAERS Safety Report 17026188 (Version 1)
Quarter: 2019Q4

REPORT INFORMATION
  Report Type: Spontaneous
  Country: US (occurrence: US)
  Receive Date: 20191112
  Receipt Date: 20191112
  Transmission Date: 20200122
  Serious: Yes (Disabling, Other)
  Sender: FDA-Public Use
  Company Number: None

PATIENT
  Age: 48 Year
  Sex: Female
  Weight: 50.4 kg

DRUGS (13)
  1. SOMETIMES FISH OIL [Concomitant]
  2. ALLEGRA [Concomitant]
     Active Substance: FEXOFENADINE HYDROCHLORIDE
  3. VITAMIN D [Concomitant]
     Active Substance: VITAMIN D NOS
  4. AMBIEN [Concomitant]
     Active Substance: ZOLPIDEM TARTRATE
  5. SOMETIMWS PROBIOTICS [Concomitant]
  6. BUDESONIDE. [Concomitant]
     Active Substance: BUDESONIDE
  7. MONOLUKEST PRN [Concomitant]
  8. IMITREX PRN [Concomitant]
  9. VITAMIN B12 [Concomitant]
     Active Substance: CYANOCOBALAMIN
  10. EMGALITY [Suspect]
     Active Substance: GALCANEZUMAB-GNLM
     Indication: MIGRAINE
     Dosage: ?          QUANTITY:5 INJECTION(S);OTHER FREQUENCY:ONCE MONTHLY;OTHER ROUTE:INJECTION IN ARM(S)?
     Dates: start: 20181107
  11. METRONIDAZOLE  PRN [Concomitant]
  12. DAILY MULTIVITAMINS [Concomitant]
  13. ALLERGY SHOTS BI-MONTHLY [Concomitant]

REACTIONS (8)
  - Inflammation [None]
  - Hypoacusis [None]
  - Neuropathy peripheral [None]
  - Alopecia [None]
  - Hypoaesthesia [None]
  - Vertigo [None]
  - Tinnitus [None]
  - Pain [None]

NARRATIVE: CASE EVENT DATE: 20190212
